FAERS Safety Report 7571524-3 (Version None)
Quarter: 2011Q2

REPORT INFORMATION
  Report Type: 
  Country: None (occurrence: None)
  Receive Date: 20110624
  Receipt Date: 20110615
  Transmission Date: 20111010
  Serious: Yes (Hospitalization, Disabling)
  Sender: FDA-Public Use
  Company Number: NL-ABBOTT-11P-114-0732712-00

PATIENT
  Sex: Male

DRUGS (2)
  1. BUPIVACAINE HCL [Suspect]
     Indication: PRODUCT USED FOR UNKNOWN INDICATION
     Dosage: LOCAL BLOCK
     Dates: start: 20100210, end: 20100210
  2. SEVOFLURANE [Suspect]
     Indication: SURGERY
     Dosage: 1-3 NOS
     Route: 055
     Dates: start: 20100210, end: 20100210

REACTIONS (2)
  - HYPOTENSION [None]
  - POST PROCEDURAL COMPLICATION [None]
